FAERS Safety Report 9537764 (Version 1)
Quarter: 2013Q3

REPORT INFORMATION
  Report Type: Spontaneous
  Country: IL (occurrence: IL)
  Receive Date: 20130919
  Receipt Date: 20130919
  Transmission Date: 20140515
  Serious: Yes (Life-Threatening)
  Sender: FDA-Public Use
  Company Number: IL-MYLANLABS-2013S1020389

PATIENT
  Age: 1 Week
  Sex: Female

DRUGS (2)
  1. CARBOPLATIN [Suspect]
     Indication: HEPATOBLASTOMA
     Dosage: 250MG/M2 FOR 1 CYCLE
     Route: 065
  2. ETOPOSIDE [Suspect]
     Indication: HEPATOBLASTOMA
     Dosage: 75MG/M2 FOR 1 CYCLE
     Route: 065

REACTIONS (4)
  - Febrile neutropenia [Recovering/Resolving]
  - Sepsis [Recovering/Resolving]
  - Pneumonia [Recovering/Resolving]
  - Metabolic acidosis [Recovering/Resolving]
